FAERS Safety Report 5477503-4 (Version None)
Quarter: 2007Q4

REPORT INFORMATION
  Report Type: 
  Country: None (occurrence: None)
  Receive Date: 20071004
  Receipt Date: 20070925
  Transmission Date: 20080405
  Serious: Yes (Other)
  Sender: FDA-Public Use
  Company Number: US-PFIZER INC-2007061736

PATIENT
  Sex: Male
  Weight: 85 kg

DRUGS (12)
  1. LYRICA [Suspect]
     Indication: PAIN
     Route: 048
  2. FOLIC ACID [Concomitant]
     Dosage: DAILY DOSE:400MG
  3. FORMOTEROL FUMARATE [Concomitant]
     Route: 045
  4. FORADIL [Concomitant]
  5. CYANOCOBALAMIN [Concomitant]
  6. GAS-X [Concomitant]
  7. VITAMIN CAP [Concomitant]
  8. PLAVIX [Concomitant]
     Dosage: DAILY DOSE:75MG
  9. OMEPRAZOLE [Concomitant]
     Dosage: DAILY DOSE:20MG
  10. VITAMIN D [Concomitant]
     Dosage: DAILY DOSE:50000I.U.
  11. VITAMIN D [Concomitant]
  12. THEOPHYLLINE [Concomitant]

REACTIONS (10)
  - ABDOMINAL DISTENSION [None]
  - ABDOMINAL PAIN UPPER [None]
  - ABNORMAL FAECES [None]
  - ACTIVITIES OF DAILY LIVING IMPAIRED [None]
  - CONSTIPATION [None]
  - DRUG INEFFECTIVE [None]
  - JOINT SWELLING [None]
  - PAIN [None]
  - PARAESTHESIA [None]
  - WEIGHT DECREASED [None]
